FAERS Safety Report 4617692-4 (Version None)
Quarter: 2005Q1

REPORT INFORMATION
  Report Type: 
  Country: None (occurrence: None)
  Receive Date: 20050324
  Receipt Date: 20050216
  Transmission Date: 20050727
  Serious: Yes (Hospitalization)
  Sender: FDA-Public Use
  Company Number: US-ROCHE-395950

PATIENT
  Age: 58 Year
  Sex: Female
  Weight: 77.1 kg

DRUGS (6)
  1. PEGASYS [Suspect]
     Dosage: PER WEEK.
     Route: 058
     Dates: start: 20040604, end: 20041115
  2. PEGASYS [Suspect]
     Dosage: PER WEEK.
     Route: 058
     Dates: start: 20050123, end: 20050311
  3. COPEGUS [Suspect]
     Dosage: DOSAGE GIVEN AT 2AM AND 3PM.
     Route: 048
     Dates: start: 20040604, end: 20041115
  4. COPEGUS [Suspect]
     Dosage: DOSAGE GIVEN AT 2AM AND 3PM.
     Route: 048
     Dates: start: 20050123, end: 20050311
  5. HYDROCHLOROTHIAZIDE [Concomitant]
     Indication: HYPERTENSION
     Route: 048
  6. TARKA [Concomitant]
     Indication: HYPERTENSION
     Route: 048

REACTIONS (14)
  - ANAEMIA [None]
  - ASTHENIA [None]
  - BLOOD MAGNESIUM DECREASED [None]
  - COUGH [None]
  - DEHYDRATION [None]
  - DYSPNOEA [None]
  - FATIGUE [None]
  - HYPOKALAEMIA [None]
  - NEUTROPENIA [None]
  - PRURITUS GENERALISED [None]
  - RASH GENERALISED [None]
  - URINARY TRACT INFECTION [None]
  - VOMITING [None]
  - WHITE BLOOD CELL COUNT DECREASED [None]
